FAERS Safety Report 6442110-3 (Version None)
Quarter: 2009Q4

REPORT INFORMATION
  Report Type: 
  Country: None (occurrence: None)
  Receive Date: 20091116
  Receipt Date: 20091113
  Transmission Date: 20100525
  Serious: Yes (Other)
  Sender: FDA-Public Use
  Company Number: US-PFIZER INC-2009275740

PATIENT
  Sex: Male

DRUGS (2)
  1. DETROL [Suspect]
     Dosage: UNK
  2. ENABLEX [Suspect]
     Dosage: UNK

REACTIONS (6)
  - CONSTIPATION [None]
  - DRUG INEFFECTIVE [None]
  - INCREASED APPETITE [None]
  - POLLAKIURIA [None]
  - POLYDIPSIA [None]
  - PROSTATE CANCER [None]
